FAERS Safety Report 20968448 (Version 3)
Quarter: 2022Q3

REPORT INFORMATION
  Report Type: Report from Study
  Country: US (occurrence: US)
  Receive Date: 20220616
  Receipt Date: 20220826
  Transmission Date: 20221027
  Serious: No
  Sender: FDA-Public Use
  Company Number: US-NOVARTISTESTPH-NVSC2022US138617

PATIENT
  Sex: Female

DRUGS (2)
  1. PIQRAY [Suspect]
     Active Substance: ALPELISIB
     Indication: Product used for unknown indication
     Dosage: UNK
     Route: 048
  2. PIQRAY [Suspect]
     Active Substance: ALPELISIB
     Route: 048

REACTIONS (6)
  - Haemorrhoids [Recovered/Resolved]
  - Vision blurred [Unknown]
  - Dysgeusia [Unknown]
  - Noninfective gingivitis [Recovered/Resolved]
  - Asthenia [Unknown]
  - Blood glucose increased [Unknown]
